FAERS Safety Report 8543448-6 (Version None)
Quarter: 2012Q3

REPORT INFORMATION
  Report Type: 
  Country: None (occurrence: None)
  Receive Date: 20120727
  Receipt Date: 20120724
  Transmission Date: 20120928
  Serious: Yes (Other)
  Sender: FDA-Public Use
  Company Number: US-PFIZER INC-2012179739

PATIENT
  Sex: Female
  Weight: 43.084 kg

DRUGS (1)
  1. SUTENT [Suspect]
     Indication: SARCOMA
     Dosage: 15 MG, DAILY
     Dates: start: 20120710, end: 20120715

REACTIONS (1)
  - PNEUMOTHORAX [None]
